FAERS Safety Report 23702356 (Version 1)
Quarter: 2024Q2

REPORT INFORMATION
  Report Type: Report from Study
  Country: ES (occurrence: ES)
  Receive Date: 20240403
  Receipt Date: 20240403
  Transmission Date: 20240716
  Serious: Yes (Life-Threatening, Other)
  Sender: FDA-Public Use
  Company Number: ES-TEVA-VS-3171517

PATIENT
  Age: 74 Year
  Sex: Male
  Weight: 74 kg

DRUGS (11)
  1. BEVACIZUMAB [Suspect]
     Active Substance: BEVACIZUMAB
     Indication: Colorectal cancer metastatic
     Dosage: 359 MILLIGRAM, Q2WK
     Route: 042
     Dates: start: 20230222, end: 20230222
  2. LEUCOVORIN CALCIUM [Suspect]
     Active Substance: LEUCOVORIN CALCIUM
     Indication: Colorectal cancer metastatic
     Dosage: 748 MILLIGRAM, Q2WK (CYCLIC)
     Route: 040
     Dates: start: 20230222, end: 20230222
  3. FLUOROURACIL [Suspect]
     Active Substance: FLUOROURACIL
     Indication: Colorectal cancer metastatic
     Dosage: 748 MILLIGRAM, Q2WK (CYCLIC) (INTRAVENOUS BOLUS)
     Route: 065
     Dates: start: 20230222, end: 20230222
  4. FLUOROURACIL [Suspect]
     Active Substance: FLUOROURACIL
     Dosage: 4488 MILLIGRAM, Q2WK (CYCLIC)
     Route: 040
     Dates: start: 20230222, end: 20230224
  5. OXALIPLATIN [Suspect]
     Active Substance: OXALIPLATIN
     Indication: Colorectal cancer metastatic
     Dosage: 158.95 MILLIGRAM, Q2WK
     Route: 040
     Dates: start: 20230222, end: 20230222
  6. SINTROM [Concomitant]
     Active Substance: ACENOCOUMAROL
     Dosage: UNK
     Route: 065
     Dates: start: 2017
  7. METFORMIN HYDROCHLORIDE\SITAGLIPTIN PHOSPHATE [Concomitant]
     Active Substance: METFORMIN HYDROCHLORIDE\SITAGLIPTIN PHOSPHATE
     Dosage: UNK
     Route: 065
     Dates: start: 2013
  8. NOVORAPID [Concomitant]
     Active Substance: INSULIN ASPART
     Dosage: UNK
     Route: 065
     Dates: start: 2013
  9. FERBISOL [Concomitant]
     Dosage: UNK
     Route: 065
     Dates: start: 2022
  10. ATORVASTATIN [Concomitant]
     Active Substance: ATORVASTATIN
     Dosage: UNK
     Route: 065
     Dates: start: 2018
  11. DUTASTERIDE\TAMSULOSIN [Concomitant]
     Active Substance: DUTASTERIDE\TAMSULOSIN
     Dosage: UNK
     Route: 065
     Dates: start: 2020

REACTIONS (1)
  - Septic shock [Recovered/Resolved]

NARRATIVE: CASE EVENT DATE: 20230302
